FAERS Safety Report 7215085-7 (Version None)
Quarter: 2011Q1

REPORT INFORMATION
  Report Type: 
  Country: None (occurrence: None)
  Receive Date: 20110107
  Receipt Date: 20100817
  Transmission Date: 20110831
  Serious: No
  Sender: FDA-Public Use
  Company Number: A0876327A

PATIENT
  Age: 86 Year
  Sex: Female

DRUGS (10)
  1. ARICEPT [Concomitant]
  2. MULTIVITAMIN [Concomitant]
  3. VITAMIN D [Concomitant]
  4. FUROSEMIDE [Concomitant]
  5. GABAPENTIN [Concomitant]
  6. POTASSIUM [Concomitant]
  7. VITAMIN B-12 [Concomitant]
  8. ACTOS [Concomitant]
  9. LOVAZA [Suspect]
     Dosage: 2CAP TWICE PER DAY
     Route: 048
     Dates: start: 20070101
  10. LIPITOR [Concomitant]

REACTIONS (1)
  - DRUG ADMINISTRATION ERROR [None]
